FAERS Safety Report 7846821-4 (Version None)
Quarter: 2011Q4

REPORT INFORMATION
  Report Type: 
  Country: None (occurrence: None)
  Receive Date: 20111025
  Receipt Date: 20111021
  Transmission Date: 20120403
  Serious: Yes (Other)
  Sender: FDA-Public Use
  Company Number: PHHY2011SE93201

PATIENT
  Sex: Male

DRUGS (7)
  1. AFINITOR [Suspect]
     Indication: HEPATIC NEOPLASM
     Dosage: 10 MG, DAILY
     Route: 065
     Dates: start: 20110601
  2. AFINITOR [Suspect]
     Dosage: 10 MG, DAILY
     Route: 065
     Dates: start: 20111008
  3. HYDROKORTISON [Concomitant]
     Route: 065
  4. NOVORAPID [Concomitant]
     Route: 065
  5. XELODA [Concomitant]
     Route: 065
  6. CREON [Concomitant]
     Route: 065
  7. CALCIUM CARBONATE [Concomitant]
     Route: 065

REACTIONS (1)
  - BLOOD GLUCOSE FLUCTUATION [None]
